FAERS Safety Report 16911128 (Version 1)
Quarter: 2019Q4

REPORT INFORMATION
  Report Type: Spontaneous
  Country: US (occurrence: US)
  Receive Date: 20190820
  Receipt Date: 20190820
  Transmission Date: 20200122
  Serious: Yes (Hospitalization)
  Sender: FDA-Public Use
  Company Number: None

PATIENT
  Age: 15 Year
  Sex: Male
  Weight: 85.9 kg

DRUGS (14)
  1. HUMALOG [Concomitant]
     Active Substance: INSULIN LISPRO
  2. MIRALAX [Concomitant]
     Active Substance: POLYETHYLENE GLYCOL 3350
  3. CYTARABINE. [Suspect]
     Active Substance: CYTARABINE
     Dates: start: 20161223
  4. VINCRISTINE SULFATE. [Suspect]
     Active Substance: VINCRISTINE SULFATE
     Dates: start: 20170112
  5. RANITDINE [Concomitant]
  6. DAUNORUBICIN [Suspect]
     Active Substance: DAUNORUBICIN
     Dates: start: 20170112
  7. METHOTREXATE. [Suspect]
     Active Substance: METHOTREXATE
     Dates: start: 20170120
  8. LANTUS [Concomitant]
     Active Substance: INSULIN GLARGINE
  9. ONDANSETRON [Concomitant]
     Active Substance: ONDANSETRON
  10. SENNA [Concomitant]
     Active Substance: SENNA LEAF\SENNOSIDES\SENNOSIDES A AND B
  11. ONCASPAR [Suspect]
     Active Substance: PEGASPARGASE
     Dates: start: 20170109
  12. BACTRIM [Concomitant]
     Active Substance: SULFAMETHOXAZOLE\TRIMETHOPRIM
  13. LISINOPRIL. [Concomitant]
     Active Substance: LISINOPRIL
  14. PROMETHAZINE [Concomitant]
     Active Substance: PROMETHAZINE HYDROCHLORIDE

REACTIONS (4)
  - Transaminases increased [None]
  - Vomiting [None]
  - Dehydration [None]
  - Hypoalbuminaemia [None]

NARRATIVE: CASE EVENT DATE: 20170126
